FAERS Safety Report 8587516-1 (Version None)
Quarter: 2012Q3

REPORT INFORMATION
  Report Type: 
  Country: None (occurrence: None)
  Receive Date: 20120810
  Receipt Date: 20120809
  Transmission Date: 20120928
  Serious: Yes (Hospitalization)
  Sender: FDA-Public Use
  Company Number: CA-MERCK-2012SP026553

PATIENT

DRUGS (3)
  1. CLONAZEPAM [Concomitant]
     Indication: ANXIETY
     Dosage: 0.5 MG, UNK
     Route: 048
  2. SAPHRIS [Suspect]
     Indication: SCHIZOPHRENIA
     Dosage: 5 MG, BID
     Route: 060
     Dates: start: 20120501, end: 20120601
  3. CELEXA [Concomitant]
     Indication: DEPRESSION
     Dosage: 40 MG, UNK
     Route: 048

REACTIONS (13)
  - HYPERHIDROSIS [None]
  - DECREASED APPETITE [None]
  - PYREXIA [None]
  - CONFUSIONAL STATE [None]
  - DEPRESSIVE SYMPTOM [None]
  - ANXIETY [None]
  - DISTURBANCE IN ATTENTION [None]
  - DIARRHOEA [None]
  - HEADACHE [None]
  - NAUSEA [None]
  - DIZZINESS [None]
  - SUICIDAL IDEATION [None]
  - TREMOR [None]
